FAERS Safety Report 7232165-0 (Version None)
Quarter: 2011Q1

REPORT INFORMATION
  Report Type: 
  Country: None (occurrence: None)
  Receive Date: 20110119
  Receipt Date: 20110111
  Transmission Date: 20110831
  Serious: No
  Sender: FDA-Public Use
  Company Number: US-BIOGENIDEC-2010BI036970

PATIENT
  Age: 56 Year
  Sex: Female

DRUGS (2)
  1. TYSABRI [Suspect]
     Indication: CROHN'S DISEASE
     Route: 042
     Dates: start: 20090910
  2. STEROIDS (NOS) [Concomitant]
     Indication: CROHN'S DISEASE
     Dates: start: 20100801

REACTIONS (1)
  - RASH ERYTHEMATOUS [None]
